FAERS Safety Report 7080303-5 (Version None)
Quarter: 2010Q4

REPORT INFORMATION
  Report Type: 
  Country: None (occurrence: None)
  Receive Date: 20101103
  Receipt Date: 20101020
  Transmission Date: 20110411
  Serious: Yes (Other)
  Sender: FDA-Public Use
  Company Number: TN-RANBAXY-2010RR-37589

PATIENT
  Age: 30 Year
  Sex: Female

DRUGS (3)
  1. CEFOTAXIME SODIUM [Suspect]
     Indication: SINUSITIS
     Dosage: 1 G, Q4H
     Route: 042
  2. FOSFOMYCIN [Concomitant]
     Indication: SINUSITIS
     Dosage: 4 G, TID
     Route: 042
  3. CIPROFLOXACIN [Concomitant]
     Indication: SINUSITIS
     Dosage: 500 MG, BID
     Route: 048

REACTIONS (1)
  - ACUTE GENERALISED EXANTHEMATOUS PUSTULOSIS [None]
